FAERS Safety Report 18253752 (Version 1)
Quarter: 2020Q3

REPORT INFORMATION
  Report Type: Report from Study
  Country: CA (occurrence: CA)
  Receive Date: 20200910
  Receipt Date: 20200910
  Transmission Date: 20201103
  Serious: Yes (Hospitalization)
  Sender: FDA-Public Use
  Company Number: CA-JNJFOC-20190735850

PATIENT
  Age: 16 Year
  Sex: Male
  Weight: 58.6 kg

DRUGS (2)
  1. REMICADE [Suspect]
     Active Substance: INFLIXIMAB
     Indication: CROHN^S DISEASE
     Dosage: STRENGTH = 100 MG
     Route: 042
     Dates: start: 20190612
  2. REMICADE [Suspect]
     Active Substance: INFLIXIMAB
     Dosage: STRENGTH = 100 MG
     Route: 042

REACTIONS (2)
  - Weight increased [Unknown]
  - Ileal stenosis [Recovering/Resolving]

NARRATIVE: CASE EVENT DATE: 201907
